FAERS Safety Report 10131016 (Version 2)
Quarter: 2014Q2

REPORT INFORMATION
  Report Type: Spontaneous
  Country: NL (occurrence: NL)
  Receive Date: 20140428
  Receipt Date: 20140519
  Transmission Date: 20141212
  Serious: Yes (Other)
  Sender: FDA-Public Use
  Company Number: NL-009507513-1404NLD013991

PATIENT
  Sex: Female

DRUGS (1)
  1. IMPLANON [Suspect]
     Indication: CONTRACEPTION
     Dosage: UNK
     Route: 059

REACTIONS (1)
  - Hysterectomy [Unknown]
